FAERS Safety Report 15052209 (Version 1)
Quarter: 2018Q2

REPORT INFORMATION
  Report Type: Spontaneous
  Country: US (occurrence: US)
  Receive Date: 20180622
  Receipt Date: 20180622
  Transmission Date: 20180711
  Serious: No
  Sender: FDA-Public Use
  Company Number: US-DENDREON PHARMACEUTICALS LLC-2017DEN000377

PATIENT
  Age: 93 Year
  Sex: Male

DRUGS (3)
  1. PROVENGE [Suspect]
     Active Substance: SIPULEUCEL-T
     Route: 042
     Dates: start: 20171012, end: 20171012
  2. PROVENGE [Suspect]
     Active Substance: SIPULEUCEL-T
     Indication: PROSTATE CANCER
     Route: 042
     Dates: start: 20170928, end: 20170928
  3. PROVENGE [Suspect]
     Active Substance: SIPULEUCEL-T
     Route: 042
     Dates: start: 20171026, end: 20171026

REACTIONS (5)
  - Culture positive [Unknown]
  - Poor quality drug administered [Unknown]
  - Poor venous access [Unknown]
  - Vision blurred [Unknown]
  - Hypotension [Unknown]

NARRATIVE: CASE EVENT DATE: 20171009
